FAERS Safety Report 5524839-4 (Version None)
Quarter: 2007Q4

REPORT INFORMATION
  Report Type: 
  Country: None (occurrence: None)
  Receive Date: 20071126
  Receipt Date: 20071121
  Transmission Date: 20080405
  Serious: Yes (Life-Threatening)
  Sender: FDA-Public Use
  Company Number: PHFR2007GB03419

PATIENT
  Age: 59 Year
  Sex: Female

DRUGS (3)
  1. CLIMAVAL [Suspect]
     Indication: MENOPAUSE
     Dosage: 2 MG, QD
     Route: 048
     Dates: start: 20060101
  2. ATENOLOL [Concomitant]
     Indication: HYPERTENSION
     Dosage: 50 MG, TID
     Dates: start: 20050101
  3. PERINDOPRIL [Concomitant]
     Indication: HYPERTENSION
     Dosage: 8 MG, TID
     Dates: start: 20050101

REACTIONS (2)
  - DEEP VEIN THROMBOSIS [None]
  - PULMONARY EMBOLISM [None]
